FAERS Safety Report 19833577 (Version 1)
Quarter: 2021Q3

REPORT INFORMATION
  Report Type: Spontaneous
  Country: US (occurrence: US)
  Receive Date: 20210915
  Receipt Date: 20210915
  Transmission Date: 20211014
  Serious: Yes (Other)
  Sender: FDA-Public Use
  Company Number: US-STRIDES ARCOLAB LIMITED-2021SP001757

PATIENT
  Age: 53 Year
  Sex: Male

DRUGS (4)
  1. THYMOGLOBULIN [Suspect]
     Active Substance: LAPINE T-LYMPHOCYTE IMMUNE GLOBULIN
     Indication: RENAL TRANSPLANT
  2. TACROLIMUS. [Suspect]
     Active Substance: TACROLIMUS
     Indication: RENAL TRANSPLANT
     Dosage: UNK
     Route: 065
     Dates: start: 2020
  3. TACROLIMUS. [Suspect]
     Active Substance: TACROLIMUS
     Indication: PANCREAS TRANSPLANT
     Dosage: UNK, MAINTENANCE IMMUNOSUPPRESSION
     Route: 065
     Dates: end: 2020
  4. THYMOGLOBULIN [Suspect]
     Active Substance: LAPINE T-LYMPHOCYTE IMMUNE GLOBULIN
     Indication: PANCREAS TRANSPLANT
     Dosage: UNK, INDUCTION IMMUNOSUPPRESSANT THERAPY
     Route: 065

REACTIONS (2)
  - COVID-19 [Recovered/Resolved]
  - Off label use [Unknown]

NARRATIVE: CASE EVENT DATE: 2020
